FAERS Safety Report 23646684 (Version 1)
Quarter: 2024Q1

REPORT INFORMATION
  Report Type: Spontaneous
  Country: IE (occurrence: IE)
  Receive Date: 20240319
  Receipt Date: 20240319
  Transmission Date: 20240409
  Serious: Yes (Other)
  Sender: FDA-Public Use
  Company Number: None

PATIENT
  Sex: Female

DRUGS (1)
  1. BOTOX [Suspect]
     Active Substance: ONABOTULINUMTOXINA
     Indication: Product used for unknown indication
     Dosage: TIME INTERVAL: AS NECESSARY: 50 ALLERGAN UNITS
     Route: 065
     Dates: start: 2004, end: 2004

REACTIONS (4)
  - Product administered from unauthorised provider [Unknown]
  - Eye swelling [Unknown]
  - Swelling face [Unknown]
  - Eyelid ptosis [Unknown]
